FAERS Safety Report 11774742 (Version 1)
Quarter: 2015Q4

REPORT INFORMATION
  Report Type: Spontaneous
  Country: US (occurrence: US)
  Receive Date: 20151124
  Receipt Date: 20151124
  Transmission Date: 20160304
  Serious: Yes (Life-Threatening, Other)
  Sender: FDA-Public Use
  Company Number: US-ABBVIE-15P-163-1504120-00

PATIENT
  Sex: Female

DRUGS (3)
  1. TEGRETOL [Suspect]
     Active Substance: CARBAMAZEPINE
     Indication: SEIZURE
     Route: 065
  2. CLONOPIN [Suspect]
     Active Substance: CLONAZEPAM
     Indication: SEIZURE
     Route: 065
  3. DEPAKOTE [Suspect]
     Active Substance: DIVALPROEX SODIUM
     Indication: SEIZURE
     Route: 065

REACTIONS (5)
  - Sedation [Unknown]
  - Movement disorder [Unknown]
  - Rash [Unknown]
  - Drug ineffective [Unknown]
  - Generalised tonic-clonic seizure [Recovering/Resolving]
